FAERS Safety Report 16089915 (Version 2)
Quarter: 2019Q2

REPORT INFORMATION
  Report Type: Spontaneous
  Country: US (occurrence: US)
  Receive Date: 20190319
  Receipt Date: 20190509
  Transmission Date: 20190711
  Serious: No
  Sender: FDA-Public Use
  Company Number: US-SA-2019SA071265

PATIENT
  Age: 55 Year
  Sex: Female

DRUGS (10)
  1. HYDROCODONE/ACETAMINOPHEN [Concomitant]
     Active Substance: ACETAMINOPHEN\HYDROCODONE
  2. TRAMADOL HCL [Concomitant]
     Active Substance: TRAMADOL HYDROCHLORIDE
  3. AUBAGIO [Suspect]
     Active Substance: TERIFLUNOMIDE
     Dosage: 1 DF, QD
     Route: 048
     Dates: start: 20181119
  4. METHOCARBAMOL. [Concomitant]
     Active Substance: METHOCARBAMOL
  5. LISINOPRIL/HYDROCHLOROTHIAZID [Concomitant]
     Active Substance: HYDROCHLOROTHIAZIDE\LISINOPRIL
  6. LORAZEPAM. [Concomitant]
     Active Substance: LORAZEPAM
  7. OMEPRAZOLE. [Concomitant]
     Active Substance: OMEPRAZOLE
  8. CITALOPRAM HYDROBROMIDE. [Concomitant]
     Active Substance: CITALOPRAM HYDROBROMIDE
  9. VENLAFAXINE HCL [Concomitant]
     Active Substance: VENLAFAXINE HYDROCHLORIDE
  10. PRAVASTATINA [PRAVASTATIN SODIUM] [Concomitant]

REACTIONS (5)
  - Fatigue [Unknown]
  - Hot flush [Unknown]
  - Pruritus [Unknown]
  - Abdominal pain upper [Not Recovered/Not Resolved]
  - Groin pain [Not Recovered/Not Resolved]
